FAERS Safety Report 23044410 (Version 4)
Quarter: 2024Q3

REPORT INFORMATION
  Report Type: Report from Study
  Country: NL (occurrence: NL)
  Receive Date: 20231009
  Receipt Date: 20240924
  Transmission Date: 20241017
  Serious: Yes (Other)
  Sender: ABBVIE
  Company Number: NL-ABBVIE-5380696

PATIENT
  Age: 76 Year
  Sex: Male

DRUGS (14)
  1. CARBIDOPA\LEVODOPA [Suspect]
     Active Substance: CARBIDOPA\LEVODOPA
     Indication: Parkinson^s disease
     Dosage: MD 9.5 ML; CD 2.3 ML/H; ED 2.0 ML, ?REMAINS AT 16 HOURS
     Route: 050
  2. CARBIDOPA\LEVODOPA [Suspect]
     Active Substance: CARBIDOPA\LEVODOPA
     Dosage: REMAINS AT 16 HOURS
     Route: 050
     Dates: start: 20221010
  3. CARBIDOPA\LEVODOPA [Suspect]
     Active Substance: CARBIDOPA\LEVODOPA
     Dosage: MD 12.5 ML; CD 2.5 ML/H; ED 2.0 ML, REMAINS AT 16 HOURS
     Route: 050
  4. CARBIDOPA\LEVODOPA [Suspect]
     Active Substance: CARBIDOPA\LEVODOPA
     Dosage: MD 11.5 ML; CD 2.4 ML/H; ED 2.0 ML, REMAINS AT 16 HOURS
     Route: 050
     Dates: start: 20230911, end: 20231003
  5. CARBIDOPA\LEVODOPA [Suspect]
     Active Substance: CARBIDOPA\LEVODOPA
     Dosage: MD 12.5 ML; CD 2.4 ML/H; ED 2.0 ML, REMAINS AT 16 HOURS
     Route: 050
  6. CARBIDOPA\LEVODOPA [Suspect]
     Active Substance: CARBIDOPA\LEVODOPA
     Dosage: MD 7.5 ML; CD 2.7 ML/H; ED 2.50 ML; CND: 1.4 ML/H; END:  2.0 ML?REMAINS AT 16 HOURS
     Route: 050
     Dates: start: 20240911
  7. CARBIDOPA\LEVODOPA [Suspect]
     Active Substance: CARBIDOPA\LEVODOPA
     Dosage: MD 12.5 ML; CD 2.4 ML/H; ED 2.0 ML
     Route: 050
     Dates: start: 20231003, end: 20240213
  8. CARBIDOPA\LEVODOPA [Suspect]
     Active Substance: CARBIDOPA\LEVODOPA
     Dosage: MD 12.0 ML; CD 2.5 ML/H; ED 2.0 ML?REMAINS AT 16 HOURS
     Route: 050
     Dates: start: 20240213, end: 20240911
  9. CARBIDOPA\LEVODOPA [Suspect]
     Active Substance: CARBIDOPA\LEVODOPA
     Dosage: DURATION TEXT: GOES TO 24 HOURS
     Route: 050
  10. Colex [Concomitant]
     Indication: Bowel movement irregularity
  11. BENSERAZIDE HYDROCHLORIDE\LEVODOPA [Concomitant]
     Active Substance: BENSERAZIDE HYDROCHLORIDE\LEVODOPA
     Indication: Parkinson^s disease
     Dosage: FORM STRENGTH:125 UNIT
     Route: 048
  12. CLOZAPINE [Concomitant]
     Active Substance: CLOZAPINE
     Indication: Parkinson^s disease
  13. CLOZAPINE [Concomitant]
     Active Substance: CLOZAPINE
     Indication: Parkinson^s disease
  14. POLYETHYLENE GLYCOLS [Concomitant]
     Active Substance: POLYETHYLENE GLYCOLS
     Indication: Abnormal faeces

REACTIONS (39)
  - Depressed level of consciousness [Not Recovered/Not Resolved]
  - Hypotension [Not Recovered/Not Resolved]
  - Hiccups [Not Recovered/Not Resolved]
  - Speech disorder [Not Recovered/Not Resolved]
  - Abnormal dreams [Recovering/Resolving]
  - Fatigue [Not Recovered/Not Resolved]
  - Bradykinesia [Recovering/Resolving]
  - Pallor [Unknown]
  - Nausea [Not Recovered/Not Resolved]
  - On and off phenomenon [Not Recovered/Not Resolved]
  - Tension [Not Recovered/Not Resolved]
  - Syncope [Recovering/Resolving]
  - Abnormal faeces [Not Recovered/Not Resolved]
  - Balance disorder [Not Recovered/Not Resolved]
  - Cognitive disorder [Not Recovered/Not Resolved]
  - Confusional state [Not Recovered/Not Resolved]
  - Tremor [Not Recovered/Not Resolved]
  - Weight increased [Not Recovered/Not Resolved]
  - Hypoacusis [Not Recovered/Not Resolved]
  - Salivary hypersecretion [Not Recovered/Not Resolved]
  - Hallucination [Recovered/Resolved]
  - Muscle rigidity [Recovering/Resolving]
  - Constipation [Not Recovered/Not Resolved]
  - Mobility decreased [Not Recovered/Not Resolved]
  - Asthenia [Not Recovered/Not Resolved]
  - Dyskinesia [Recovering/Resolving]
  - Catheter site pain [Not Recovered/Not Resolved]
  - Muscle spasms [Not Recovered/Not Resolved]
  - Unevaluable event [Recovering/Resolving]
  - Posture abnormal [Unknown]
  - Diarrhoea [Not Recovered/Not Resolved]
  - Bradyphrenia [Not Recovered/Not Resolved]
  - Depression [Not Recovered/Not Resolved]
  - Nocturia [Not Recovered/Not Resolved]
  - Device issue [Not Recovered/Not Resolved]
  - Stoma site inflammation [Not Recovered/Not Resolved]
  - Orthostatic hypotension [Not Recovered/Not Resolved]
  - Unevaluable event [Not Recovered/Not Resolved]
  - Middle insomnia [Not Recovered/Not Resolved]

NARRATIVE: CASE EVENT DATE: 20230101
